FAERS Safety Report 4341928-0 (Version None)
Quarter: 2004Q2

REPORT INFORMATION
  Report Type: 
  Country: None (occurrence: None)
  Receive Date: 20040415
  Receipt Date: 20040408
  Transmission Date: 20050107
  Serious: No
  Sender: FDA-Public Use
  Company Number: A20040207

PATIENT
  Age: 70 Year
  Sex: Female

DRUGS (4)
  1. CRAVIT OPHTHALMIC SOLUTION (0.5% LEVOFLOXACIN OPHTHALMIC SOLUTION) [Suspect]
     Indication: INFLAMMATION
     Dosage: 4 DROPS INTRAOCULAR INSTILLATION
     Dates: start: 20020621, end: 20031230
  2. CRAVIT OPHTHALMIC SOLUTION (0.5% LEVOFLOXACIN OPHTHALMIC SOLUTION) [Suspect]
     Indication: POSTOPERATIVE CARE
     Dosage: 4 DROPS INTRAOCULAR INSTILLATION
     Dates: start: 20020621, end: 20031230
  3. FLUMETHOLON 0.1 (0.1% FLUOROMETHOLONE OPHTHALMIC SOLUTION) [Suspect]
     Indication: INFLAMMATION
     Dosage: 4 DROPS INTRAOCULAR INSTILLATION
     Route: 031
     Dates: start: 20020621, end: 20031225
  4. FLUMETHOLON 0.1 (0.1% FLUOROMETHOLONE OPHTHALMIC SOLUTION) [Suspect]
     Indication: POSTOPERATIVE CARE
     Dosage: 4 DROPS INTRAOCULAR INSTILLATION
     Route: 031
     Dates: start: 20020621, end: 20031225

REACTIONS (2)
  - CORNEAL ABSCESS [None]
  - ENDOPHTHALMITIS [None]
